FAERS Safety Report 18310994 (Version 4)
Quarter: 2021Q2

REPORT INFORMATION
  Report Type: Spontaneous
  Country: US (occurrence: US)
  Receive Date: 20200924
  Receipt Date: 20210629
  Transmission Date: 20210717
  Serious: Yes (Other)
  Sender: FDA-Public Use
  Company Number: US-GILEAD-2020-0495672

PATIENT
  Age: 32 Year
  Sex: Male
  Weight: 65.76 kg

DRUGS (38)
  1. TRUVADA [Suspect]
     Active Substance: EMTRICITABINE\TENOFOVIR DISOPROXIL FUMARATE
     Dosage: UNK
     Route: 048
     Dates: start: 2019
  2. ACETAMINOPHEN. [Concomitant]
     Active Substance: ACETAMINOPHEN
  3. TETRACYCLINE [Concomitant]
     Active Substance: TETRACYCLINE
  4. CEPHALEXIN [CEFALEXIN] [Concomitant]
     Active Substance: CEPHALEXIN
  5. PROAIR HFA [Concomitant]
     Active Substance: ALBUTEROL SULFATE
  6. PROMETHAZINE ? DEXTROMETHORPHANE [Concomitant]
  7. DESCOVY [Concomitant]
     Active Substance: EMTRICITABINE\TENOFOVIR ALAFENAMIDE FUMARATE
  8. ASPIRIN [ACETYLSALICYLIC ACID] [Concomitant]
     Active Substance: ASPIRIN
  9. IMIQUIMOD. [Concomitant]
     Active Substance: IMIQUIMOD
  10. FLUZONE [FLUCONAZOLE] [Concomitant]
     Active Substance: FLUCONAZOLE
  11. ETODOLAC. [Concomitant]
     Active Substance: ETODOLAC
  12. TRUVADA [Suspect]
     Active Substance: EMTRICITABINE\TENOFOVIR DISOPROXIL FUMARATE
     Indication: PROPHYLAXIS AGAINST HIV INFECTION
     Dosage: UNK
     Route: 048
     Dates: start: 2013, end: 201912
  13. TRUVADA [Suspect]
     Active Substance: EMTRICITABINE\TENOFOVIR DISOPROXIL FUMARATE
     Dosage: UNK
     Route: 048
     Dates: start: 2013, end: 2015
  14. PENICILLIN NOS [Concomitant]
     Active Substance: PENICILLIN
  15. CHLORPHENIRAMINE;HYDROCODONE [Concomitant]
     Active Substance: CHLORPHENIRAMINE\HYDROCODONE
  16. ZOLPIDEM [Concomitant]
     Active Substance: ZOLPIDEM TARTRATE
  17. FLUTICASONE PROPIONATE. [Concomitant]
     Active Substance: FLUTICASONE PROPIONATE
  18. TRUVADA [Suspect]
     Active Substance: EMTRICITABINE\TENOFOVIR DISOPROXIL FUMARATE
     Dosage: UNK
     Route: 048
     Dates: start: 20191011, end: 20200225
  19. ISENTRESS [Concomitant]
     Active Substance: RALTEGRAVIR POTASSIUM
  20. CLARAVIS [Concomitant]
     Active Substance: ISOTRETINOIN
  21. PERMETHRIN. [Concomitant]
     Active Substance: PERMETHRIN
  22. OXYCODONE HYDROCHLORIDE. [Concomitant]
     Active Substance: OXYCODONE HYDROCHLORIDE
  23. FOSAMAX [Concomitant]
     Active Substance: ALENDRONATE SODIUM
  24. HYDROCODONE/ACETAMINOPHEN [Concomitant]
     Active Substance: ACETAMINOPHEN\HYDROCODONE
  25. MELOXICAM. [Concomitant]
     Active Substance: MELOXICAM
  26. AZITHROMYCIN ANHYDROUS. [Concomitant]
     Active Substance: AZITHROMYCIN ANHYDROUS
  27. SULFAMETHOXAZOLE AND TRIMETHOPRIM [Concomitant]
     Active Substance: SULFAMETHOXAZOLE\TRIMETHOPRIM
  28. SILVER SULFADIAZINE. [Concomitant]
     Active Substance: SILVER SULFADIAZINE
  29. CEFDINIR. [Concomitant]
     Active Substance: CEFDINIR
  30. FLUCONAZOLE. [Concomitant]
     Active Substance: FLUCONAZOLE
  31. CLINDACIN PAC [Concomitant]
     Active Substance: CLINDAMYCIN PHOSPHATE
  32. ERYTHROMYCIN. [Concomitant]
     Active Substance: ERYTHROMYCIN
  33. BENZONATATE. [Concomitant]
     Active Substance: BENZONATATE
  34. ALENDRONATE [Concomitant]
     Active Substance: ALENDRONATE SODIUM
  35. PREDNISONE. [Concomitant]
     Active Substance: PREDNISONE
  36. AMOXICILLIN + CLAVULANIC ACID [Concomitant]
     Active Substance: AMOXICILLIN\CLAVULANIC ACID
  37. DOXYCYCLINE HYCLATE. [Concomitant]
     Active Substance: DOXYCYCLINE HYCLATE
  38. CLINDAMYCIN. [Concomitant]
     Active Substance: CLINDAMYCIN

REACTIONS (17)
  - Nephropathy [Unknown]
  - Cartilage injury [Unknown]
  - Joint stiffness [Unknown]
  - Bone loss [Unknown]
  - Pain [Unknown]
  - Osteonecrosis [Not Recovered/Not Resolved]
  - Anxiety [Unknown]
  - Bone density decreased [Unknown]
  - Bursitis [Unknown]
  - Femoroacetabular impingement [Unknown]
  - Depression [Not Recovered/Not Resolved]
  - Bone disorder [Unknown]
  - Emotional distress [Unknown]
  - Soft tissue disorder [Unknown]
  - Anhedonia [Unknown]
  - Renal injury [Unknown]
  - Skeletal injury [Unknown]

NARRATIVE: CASE EVENT DATE: 2020
